FAERS Safety Report 9418355 (Version 2)
Quarter: 2013Q3

REPORT INFORMATION
  Report Type: Spontaneous
  Country: GR (occurrence: GR)
  Receive Date: 20130725
  Receipt Date: 20130729
  Transmission Date: 20140515
  Serious: Yes (Other)
  Sender: FDA-Public Use
  Company Number: GR-ROCHE-1252198

PATIENT
  Sex: Male

DRUGS (9)
  1. MABTHERA [Suspect]
     Indication: B-CELL LYMPHOMA
     Dosage: 2 CYCLES
     Route: 042
  2. CYCLOPHOSPHAMIDE [Suspect]
     Indication: NON-HODGKIN^S LYMPHOMA
     Dosage: 6 CYCLES
     Route: 065
  3. DOXORUBICIN HYDROCHLORIDE [Suspect]
     Indication: NON-HODGKIN^S LYMPHOMA
     Dosage: 6 CYCLES.
     Route: 065
  4. VINCRISTINE SULFATE [Suspect]
     Indication: NON-HODGKIN^S LYMPHOMA
     Dosage: 6 CYCLES.
     Route: 065
  5. PREDNISONE [Suspect]
     Indication: NON-HODGKIN^S LYMPHOMA
     Dosage: 6 CYCLES.
     Route: 065
  6. ETOPOSIDE [Suspect]
     Indication: B-CELL LYMPHOMA
     Route: 042
  7. METHYLPREDNISOLONE [Suspect]
     Indication: B-CELL LYMPHOMA
     Route: 042
  8. CISPLATIN [Suspect]
     Indication: B-CELL LYMPHOMA
     Route: 042
  9. CYTARABINE [Suspect]
     Indication: B-CELL LYMPHOMA
     Dosage: 2 G/M2
     Route: 042

REACTIONS (4)
  - Disease progression [Unknown]
  - Liver disorder [Unknown]
  - Vasculitis [Not Recovered/Not Resolved]
  - Oedema [Not Recovered/Not Resolved]
